FAERS Safety Report 11811969 (Version 2)
Quarter: 2015Q4

REPORT INFORMATION
  Report Type: Report from Study
  Country: CO (occurrence: CO)
  Receive Date: 20151208
  Receipt Date: 20151228
  Transmission Date: 20160305
  Serious: Yes (Other)
  Sender: FDA-Public Use
  Company Number: PHHY2015CO160048

PATIENT
  Sex: Male
  Weight: 50 kg

DRUGS (1)
  1. TASIGNA [Suspect]
     Active Substance: NILOTINIB
     Indication: CHRONIC MYELOID LEUKAEMIA
     Dosage: 200 MG, QD
     Route: 048
     Dates: start: 20150226, end: 20151127

REACTIONS (4)
  - Pain [Not Recovered/Not Resolved]
  - Hepatitis [Unknown]
  - Arthralgia [Unknown]
  - Spinal disorder [Unknown]
